FAERS Safety Report 9178435 (Version 1)
Quarter: 2012Q4

REPORT INFORMATION
  Report Type: 
  Country: US (occurrence: US)
  Receive Date: 20121029
  Receipt Date: 20121029
  Transmission Date: 20130627
  Serious: No
  Sender: FDA-Public Use
  Company Number: US-PFIZER INC-2012268788

PATIENT
  Age: 47 Year
  Sex: Female
  Weight: 52.15 kg

DRUGS (8)
  1. EFFEXOR [Suspect]
     Indication: ANXIETY
     Dosage: 25 mg, daily
     Route: 048
     Dates: start: 1993
  2. EFFEXOR [Suspect]
     Indication: DEPRESSION
     Dosage: 25 mg, 2x/day
     Route: 048
  3. EFFEXOR [Suspect]
     Dosage: 25 mg, 3x/day
     Route: 048
  4. EFFEXOR [Suspect]
     Dosage: 25 mg, UNK
     Route: 048
     Dates: end: 201206
  5. EFFEXOR XR [Suspect]
     Indication: ANXIETY
     Dosage: UNK
     Route: 048
     Dates: start: 2012, end: 2012
  6. EFFEXOR XR [Suspect]
     Indication: DEPRESSION
  7. VENLAFAXINE HYDROCHLORIDE [Suspect]
     Indication: ANXIETY
     Dosage: 25 mg, 2x/day
     Dates: start: 201206
  8. VENLAFAXINE HYDROCHLORIDE [Suspect]
     Indication: DEPRESSION

REACTIONS (4)
  - Fear [Unknown]
  - Emotional disorder [Unknown]
  - Malaise [Unknown]
  - Drug ineffective [Unknown]
